FAERS Safety Report 10210788 (Version 1)
Quarter: 2014Q2

REPORT INFORMATION
  Report Type: Spontaneous
  Country: GB (occurrence: GB)
  Receive Date: 20140602
  Receipt Date: 20140602
  Transmission Date: 20141212
  Serious: Yes (Hospitalization, Other)
  Sender: FDA-Public Use
  Company Number: GB-MYLANLABS-2014S1012028

PATIENT
  Age: 20 Year
  Sex: Male
  Weight: 69 kg

DRUGS (2)
  1. ISOTRETINOIN [Suspect]
     Indication: ACNE
     Route: 048
     Dates: start: 201403, end: 20140507
  2. ISOTRETINOIN [Suspect]
     Indication: ACNE
     Route: 048
     Dates: start: 20140507, end: 20140507

REACTIONS (6)
  - Type 1 diabetes mellitus [Recovering/Resolving]
  - Polyuria [Recovering/Resolving]
  - Polydipsia [Recovering/Resolving]
  - Weight decreased [Recovering/Resolving]
  - Influenza like illness [Recovering/Resolving]
  - Blood triglycerides increased [Recovering/Resolving]
